FAERS Safety Report 6739884-0 (Version None)
Quarter: 2010Q2

REPORT INFORMATION
  Report Type: 
  Country: None (occurrence: None)
  Receive Date: 20100525
  Receipt Date: 20100517
  Transmission Date: 20101027
  Serious: Yes (Disabling)
  Sender: FDA-Public Use
  Company Number: FR-PFIZER INC-2010061303

PATIENT
  Age: 64 Year
  Sex: Male
  Weight: 98 kg

DRUGS (5)
  1. TAHOR [Suspect]
     Indication: DYSLIPIDAEMIA
     Dosage: 10 MG, 1X/DAY
     Route: 048
     Dates: start: 20030715
  2. TAHOR [Suspect]
     Dosage: 1 TABLET ONCE A DAY
     Route: 048
     Dates: start: 20071005
  3. KARDEGIC [Concomitant]
     Dosage: 75 MG, 1X/DAY
     Route: 048
     Dates: start: 20030715
  4. ICAZ [Concomitant]
     Indication: HYPERTENSION
     Dosage: 2.5 MG, 1X/DAY
     Route: 048
     Dates: start: 20030715
  5. CANDESARTAN CILEXETIL/HYDROCHLOROTHIAZIDE (ATACAND HCT) [Concomitant]
     Indication: HYPERTENSION
     Dosage: 1 TABLET ONCE A DAY
     Route: 048
     Dates: start: 20030715

REACTIONS (2)
  - TENDON RUPTURE [None]
  - TENDONITIS [None]
